FAERS Safety Report 12728525 (Version 1)
Quarter: 2016Q3

REPORT INFORMATION
  Report Type: Spontaneous
  Country: US (occurrence: US)
  Receive Date: 20160907
  Receipt Date: 20160907
  Transmission Date: 20161109
  Serious: No
  Sender: FDA-Public Use
  Company Number: None

PATIENT
  Age: 56 Year
  Sex: Female
  Weight: 67.5 kg

DRUGS (5)
  1. CREATOR [Concomitant]
  2. MULTI VITAMIN [Concomitant]
     Active Substance: VITAMINS
  3. TIZANIDINE HCL 2MG TABS [Suspect]
     Active Substance: TIZANIDINE HYDROCHLORIDE
     Indication: PAIN
     Dosage: OTHER STRENGTH:;OTHER DOSE:1 TABLET;OTHER FREQUENCY:;OTHER ROUTE:
     Route: 048
     Dates: start: 20141104
  4. PEPCID [Concomitant]
     Active Substance: FAMOTIDINE
  5. LEVOTHYROXINE. [Concomitant]
     Active Substance: LEVOTHYROXINE

REACTIONS (2)
  - Drug effect variable [None]
  - Product quality issue [None]

NARRATIVE: CASE EVENT DATE: 20160505
